FAERS Safety Report 6779401-2 (Version None)
Quarter: 2010Q2

REPORT INFORMATION
  Report Type: 
  Country: None (occurrence: None)
  Receive Date: 20100618
  Receipt Date: 20100615
  Transmission Date: 20101027
  Serious: Yes (Death, Other)
  Sender: FDA-Public Use
  Company Number: PHHY2010JP39301

PATIENT
  Sex: Female
  Weight: 41 kg

DRUGS (3)
  1. CGS 20267 T30748+TAB [Suspect]
     Indication: BREAST CANCER
     Dosage: 2.5 MG DAILY
     Route: 048
     Dates: start: 20061121, end: 20070827
  2. TS 1 [Concomitant]
     Indication: BREAST CANCER
     Dosage: 80 MG, UNK
     Route: 048
     Dates: start: 20070121, end: 20070827
  3. HERCEPTIN [Concomitant]
     Indication: BREAST CANCER
     Dosage: 81 MG, UNK
     Route: 042
     Dates: start: 20070718, end: 20070829

REACTIONS (2)
  - DEATH [None]
  - MALIGNANT NEOPLASM PROGRESSION [None]
